FAERS Safety Report 19947099 (Version 4)
Quarter: 2021Q4

REPORT INFORMATION
  Report Type: Spontaneous
  Country: US (occurrence: US)
  Receive Date: 20211013
  Receipt Date: 20211119
  Transmission Date: 20220303
  Serious: No
  Sender: FDA-Public Use
  Company Number: US-AIMMUNE THERAPEUTICS, INC.-2021AIMT00607

PATIENT

DRUGS (6)
  1. PALFORZIA [Suspect]
     Active Substance: PEANUT
     Indication: Food allergy
     Dosage: 6 MG, 1X/DAY
     Route: 048
     Dates: start: 20210928, end: 202110
  2. PALFORZIA [Suspect]
     Active Substance: PEANUT
     Dosage: 6 MG, 1X/DAY, SAMPLE PACKAGE
     Route: 048
     Dates: start: 2021, end: 2021
  3. PALFORZIA [Suspect]
     Active Substance: PEANUT
     Dosage: 6 MG, 1X/DAY, SAMPLE PACKAGE
     Route: 048
     Dates: start: 2021, end: 2021
  4. PALFORZIA [Suspect]
     Active Substance: PEANUT
     Dosage: 6 MG, 1X/DAY, LAST DOSE PRIOR WEIRDNESS IN SALIVA GLAND AND WEIRD SOUR TASTE
     Route: 048
     Dates: start: 20210928, end: 20210928
  5. PALFORZIA [Suspect]
     Active Substance: PEANUT
     Dosage: 6 MG, 1X/DAY, LAST DOSE PRIOR THREW UP
     Route: 048
     Dates: start: 20211002, end: 20211002
  6. PALFORZIA [Suspect]
     Active Substance: PEANUT
     Dosage: 3 MG, 1X/DAY
     Route: 048
     Dates: start: 20211115

REACTIONS (7)
  - Nasopharyngitis [Unknown]
  - Salivary gland disorder [Recovering/Resolving]
  - Dysgeusia [Recovering/Resolving]
  - Viral infection [Recovered/Resolved]
  - Vomiting [Recovered/Resolved]
  - Abdominal pain upper [Recovered/Resolved]
  - Nausea [Recovered/Resolved]

NARRATIVE: CASE EVENT DATE: 20210928
